FAERS Safety Report 6690042-8 (Version None)
Quarter: 2010Q2

REPORT INFORMATION
  Report Type: 
  Country: None (occurrence: None)
  Receive Date: 20100421
  Receipt Date: 20100412
  Transmission Date: 20101027
  Serious: Yes (Hospitalization, Other)
  Sender: FDA-Public Use
  Company Number: PHHY2010DE22842

PATIENT
  Sex: Female
  Weight: 105 kg

DRUGS (1)
  1. ZOLEDRONATE T29581+ [Suspect]
     Indication: BONE DISORDER
     Dosage: 4 MG EVERY 4 WEEKS
     Route: 042
     Dates: start: 20091127

REACTIONS (3)
  - BONE MARROW TUMOUR CELL INFILTRATION [None]
  - DYSPNOEA EXERTIONAL [None]
  - PLASMACYTOMA [None]
